FAERS Safety Report 16973709 (Version 3)
Quarter: 2019Q4

REPORT INFORMATION
  Report Type: Spontaneous
  Country: US (occurrence: US)
  Receive Date: 20191030
  Receipt Date: 20191209
  Transmission Date: 20200122
  Serious: No
  Sender: FDA-Public Use
  Company Number: US-PFIZER INC-2019466981

PATIENT
  Age: 71 Year
  Sex: Male

DRUGS (1)
  1. XELJANZ [Suspect]
     Active Substance: TOFACITINIB CITRATE
     Indication: RHEUMATOID ARTHRITIS
     Dosage: UNK

REACTIONS (6)
  - Pain [Unknown]
  - Chondropathy [Unknown]
  - Neutrophil percentage decreased [Unknown]
  - Red blood cell sedimentation rate decreased [Unknown]
  - Lymphocyte percentage increased [Unknown]
  - Memory impairment [Unknown]

NARRATIVE: CASE EVENT DATE: 20190118
